FAERS Safety Report 4797091-5 (Version None)
Quarter: 2005Q3

REPORT INFORMATION
  Report Type: 
  Country: None (occurrence: None)
  Receive Date: 20050916
  Receipt Date: 20050517
  Transmission Date: 20060218
  Serious: Yes (Life-Threatening, Other)
  Sender: FDA-Public Use
  Company Number: US-JNJFOC-20050304129

PATIENT
  Age: 55 Year
  Sex: Female

DRUGS (8)
  1. TOPAMAX [Suspect]
     Indication: MIGRAINE
     Dosage: 25 MG, 2 IN 1 DAY, ORAL
     Route: 048
     Dates: start: 20041012
  2. EFFEXOR [Concomitant]
  3. LIPITOR [Concomitant]
  4. PROTONIX [Concomitant]
  5. SINGULAIR [Concomitant]
  6. GLUCOSAMINE (GLUCOSAMINE) [Concomitant]
  7. VITAMIN (VITAMINS NOS) [Concomitant]
  8. NEURONTIN [Concomitant]

REACTIONS (6)
  - AGGRESSION [None]
  - DEPRESSION [None]
  - FACIAL PAIN [None]
  - HALLUCINATION [None]
  - PARANOIA [None]
  - SUICIDAL IDEATION [None]
